FAERS Safety Report 25914501 (Version 1)
Quarter: 2025Q4

REPORT INFORMATION
  Report Type: Spontaneous
  Country: US (occurrence: US)
  Receive Date: 20251013
  Receipt Date: 20251013
  Transmission Date: 20260118
  Serious: No
  Sender: IPSEN BIOPHARMACEUTICALS, INC.
  Company Number: US-IPSEN Group, Research and Development-2025-24967

PATIENT
  Sex: Female

DRUGS (2)
  1. IQIRVO [Suspect]
     Active Substance: ELAFIBRANOR
     Indication: Primary biliary cholangitis
     Dosage: 80MG
     Route: 048
     Dates: start: 202506
  2. OCALIVA [Concomitant]
     Active Substance: OBETICHOLIC ACID

REACTIONS (2)
  - Irritability [Unknown]
  - Anger [Unknown]
